FAERS Safety Report 4781807-8 (Version None)
Quarter: 2005Q3

REPORT INFORMATION
  Report Type: 
  Country: None (occurrence: None)
  Receive Date: 20050914
  Receipt Date: 20050418
  Transmission Date: 20060218
  Serious: Yes (Other)
  Sender: FDA-Public Use
  Company Number: 163-20785-05040385

PATIENT
  Age: 74 Year
  Sex: Female

DRUGS (6)
  1. THALOMID [Suspect]
     Indication: MULTIPLE MYELOMA
     Dosage: 100 MG, QHS, ORAL ; 50 MG, Q HS, ORAL
     Route: 048
     Dates: end: 20050418
  2. THALOMID [Suspect]
     Indication: MULTIPLE MYELOMA
     Dosage: 100 MG, QHS, ORAL ; 50 MG, Q HS, ORAL
     Route: 048
     Dates: start: 20050330
  3. PREVACID [Concomitant]
  4. LIPITOR [Concomitant]
  5. DECADRON [Concomitant]
  6. VASOTEC [Concomitant]

REACTIONS (1)
  - DEEP VEIN THROMBOSIS [None]
